FAERS Safety Report 16110505 (Version 1)
Quarter: 2019Q1

REPORT INFORMATION
  Report Type: Spontaneous
  Country: NO (occurrence: NO)
  Receive Date: 20190325
  Receipt Date: 20190325
  Transmission Date: 20190418
  Serious: Yes (Hospitalization)
  Sender: FDA-Public Use
  Company Number: NO-ACCORD-115130

PATIENT
  Age: 74 Year
  Sex: Female

DRUGS (4)
  1. CALCIGRAN FORTE [Concomitant]
     Active Substance: CALCIUM CARBONATE\CHOLECALCIFEROL
     Indication: OSTEOPOROSIS
     Dosage: STRENGTH: 1000 MG / 800 MG
     Route: 048
  2. ALENDRONATE SODIUM/ALENDRONIC ACID [Concomitant]
     Indication: OSTEOPOROSIS
     Route: 048
  3. SIMVASTATIN. [Suspect]
     Active Substance: SIMVASTATIN
     Indication: HYPERCHOLESTEROLAEMIA
     Route: 048
  4. TEGRETOL [Interacting]
     Active Substance: CARBAMAZEPINE
     Indication: TRIGEMINAL NEURALGIA
     Dosage: RECENT INCREASE IN DOSAGE FROM 200 MG ONCE DAILY TO 200 MG TWICE DAILY.STRENGTH: 200 MG MILLIGRAM
     Route: 048
     Dates: end: 20181109

REACTIONS (3)
  - Drug interaction [Unknown]
  - Syncope [Recovered/Resolved]
  - Hyponatraemia [Recovering/Resolving]

NARRATIVE: CASE EVENT DATE: 20181109
